FAERS Safety Report 25096805 (Version 2)
Quarter: 2025Q1

REPORT INFORMATION
  Report Type: Spontaneous
  Country: AU (occurrence: AU)
  Receive Date: 20250319
  Receipt Date: 20250326
  Transmission Date: 20250408
  Serious: No
  Sender: NOVARTIS
  Company Number: AU-002147023-NVSC2025AU041355

PATIENT
  Sex: Female

DRUGS (1)
  1. INCLISIRAN [Suspect]
     Active Substance: INCLISIRAN
     Indication: Product used for unknown indication
     Route: 065

REACTIONS (1)
  - Herpes zoster [Unknown]
